FAERS Safety Report 4277611-X (Version None)
Quarter: 2004Q1

REPORT INFORMATION
  Report Type: 
  Country: None (occurrence: None)
  Receive Date: 20040121
  Receipt Date: 20040108
  Transmission Date: 20041129
  Serious: Yes (Hospitalization, Other)
  Sender: FDA-Public Use
  Company Number: 2004001757

PATIENT
  Sex: Female

DRUGS (3)
  1. NEURONTIN [Suspect]
     Indication: ILL-DEFINED DISORDER
     Dates: start: 20031201
  2. CODEINE PHOSPHATE AND ACETAMINOPHEN [Concomitant]
  3. AMITRIPTYLINE HYDROCHLORIDE [Concomitant]

REACTIONS (3)
  - ELECTROMYOGRAM ABNORMAL [None]
  - LIVER FUNCTION TEST ABNORMAL [None]
  - RESPIRATORY ARREST [None]
